FAERS Safety Report 9698683 (Version 3)
Quarter: 2015Q1

REPORT INFORMATION
  Report Type: Spontaneous
  Country: US (occurrence: US)
  Receive Date: 20131120
  Receipt Date: 20150326
  Transmission Date: 20150721
  Serious: Yes (Life-Threatening, Hospitalization)
  Sender: FDA-Public Use
  Company Number: US-BAYER-2013-140514

PATIENT
  Age: 36 Year
  Sex: Female
  Weight: 83.9 kg

DRUGS (2)
  1. MIRENA [Suspect]
     Active Substance: LEVONORGESTREL
     Indication: CONTRACEPTION
     Dosage: 20 MCG/24HR, CONT
     Route: 015
     Dates: start: 20100921, end: 20120712
  2. FLONASE [Concomitant]
     Active Substance: FLUTICASONE PROPIONATE
     Indication: NASAL CONGESTION
     Dosage: 50 MCG; 2 SPRAYS PER NOSTRIL ONCE A DAY AS NEEDED
     Dates: start: 20120412

REACTIONS (12)
  - Embedded device [None]
  - Genital haemorrhage [None]
  - Abdominal pain lower [None]
  - Anhedonia [None]
  - Device defective [None]
  - Menorrhagia [None]
  - Emotional distress [None]
  - General physical health deterioration [None]
  - Anxiety [None]
  - Device difficult to use [None]
  - Injury [None]
  - Device dislocation [None]

NARRATIVE: CASE EVENT DATE: 2010
